FAERS Safety Report 24544302 (Version 1)
Quarter: 2024Q4

REPORT INFORMATION
  Report Type: Spontaneous
  Country: PK (occurrence: PK)
  Receive Date: 20241024
  Receipt Date: 20241024
  Transmission Date: 20250115
  Serious: Yes (Hospitalization)
  Sender: MACLEODS
  Company Number: PK-MLMSERVICE-20241008-PI221224-00039-1

PATIENT

DRUGS (8)
  1. ACYCLOVIR [Suspect]
     Active Substance: ACYCLOVIR
     Indication: Evidence based treatment
     Dosage: STAT
     Route: 042
  2. ACYCLOVIR [Suspect]
     Active Substance: ACYCLOVIR
     Indication: Herpes simplex encephalitis
     Dosage: 750 MG THREE TIMES DAILY
     Route: 042
  3. DEXAMETHASONE [Concomitant]
     Active Substance: DEXAMETHASONE
     Indication: Product used for unknown indication
     Dosage: 8 MG ONCE DAILY
     Route: 065
  4. ACETAMINOPHEN [Concomitant]
     Active Substance: ACETAMINOPHEN
     Indication: Product used for unknown indication
     Dosage: 1 GM THREE TIMES DAILY
     Route: 065
  5. ENOXAPARIN [Concomitant]
     Active Substance: ENOXAPARIN
     Indication: Cerebral venous thrombosis
     Dosage: 60 MG SUBCUTANEOUSLY TWICE DAILY
     Route: 058
  6. ENOXAPARIN [Concomitant]
     Active Substance: ENOXAPARIN
  7. ENOXAPARIN [Concomitant]
     Active Substance: ENOXAPARIN
  8. SODIUM CHLORIDE [Concomitant]
     Active Substance: SODIUM CHLORIDE
     Dosage: 500 ONCE DAILY
     Route: 065

REACTIONS (1)
  - Nephropathy toxic [Recovered/Resolved]
